FAERS Safety Report 8869307 (Version 1)
Quarter: 2012Q4

REPORT INFORMATION
  Report Type: Spontaneous
  Country: US (occurrence: None)
  Receive Date: 20121025
  Receipt Date: 20121025
  Transmission Date: 20130627
  Serious: Yes (Other)
  Sender: FDA-Public Use
  Company Number: None

PATIENT
  Sex: Female
  Weight: 58.97 kg

DRUGS (1)
  1. MELOXICAM [Suspect]
     Indication: SHOULDER PAIN
     Dosage: 7.5mg BID po
     Route: 048
     Dates: start: 20120911, end: 20120917

REACTIONS (4)
  - Joint swelling [None]
  - Arthralgia [None]
  - Joint range of motion decreased [None]
  - Gait disturbance [None]
